FAERS Safety Report 6221300-9 (Version None)
Quarter: 2009Q2

REPORT INFORMATION
  Report Type: 
  Country: None (occurrence: None)
  Receive Date: 20090610
  Receipt Date: 20090608
  Transmission Date: 20091009
  Serious: Yes (Hospitalization)
  Sender: FDA-Public Use
  Company Number: US-BRISTOL-MYERS SQUIBB COMPANY-14653489

PATIENT
  Age: 65 Year
  Sex: Male

DRUGS (10)
  1. COUMADIN [Suspect]
     Dates: end: 20090506
  2. LETAIRIS [Suspect]
     Indication: PULMONARY ARTERIAL HYPERTENSION
     Route: 048
     Dates: start: 20090401
  3. LASIX [Concomitant]
  4. PROCARDIA [Concomitant]
  5. METOPROLOL SUCCINATE [Concomitant]
  6. HYDRALAZINE HCL [Concomitant]
  7. METFORMIN [Concomitant]
  8. DIAMOX [Concomitant]
  9. POTASSIUM CHLORIDE [Concomitant]
  10. CYMBALTA [Concomitant]

REACTIONS (4)
  - CARDIAC FAILURE CONGESTIVE [None]
  - GASTROINTESTINAL HAEMORRHAGE [None]
  - PULMONARY OEDEMA [None]
  - RESPIRATORY FAILURE [None]
